FAERS Safety Report 8807125 (Version 1)
Quarter: 2012Q4

REPORT INFORMATION
  Report Type: 
  Country: ZA (occurrence: ZA)
  Receive Date: 20120925
  Receipt Date: 20120925
  Transmission Date: 20130627
  Serious: Yes (Death, Other)
  Sender: FDA-Public Use
  Company Number: PHHO2005ZA12847

PATIENT
  Age: 44 Year
  Sex: Female
  Weight: 80 kg

DRUGS (1)
  1. GLIVEC [Suspect]
     Indication: BLAST CRISIS IN MYELOGENOUS LEUKAEMIA
     Dosage: 600 mg, QD
     Route: 048
     Dates: start: 20050314

REACTIONS (6)
  - Sepsis [Fatal]
  - Hyperviscosity syndrome [Fatal]
  - Depressed level of consciousness [Fatal]
  - Pulmonary infarction [Unknown]
  - Splenic infarction [Unknown]
  - Fungal sepsis [None]
